FAERS Safety Report 5615346-9 (Version None)
Quarter: 2008Q1

REPORT INFORMATION
  Report Type: 
  Country: None (occurrence: None)
  Receive Date: 20080206
  Receipt Date: 20080130
  Transmission Date: 20080703
  Serious: Yes (Hospitalization, Other)
  Sender: FDA-Public Use
  Company Number: TW-BRISTOL-MYERS SQUIBB COMPANY-14063903

PATIENT
  Age: 42 Year
  Sex: Female

DRUGS (4)
  1. CETUXIMAB [Suspect]
     Indication: GASTRIC CANCER
     Route: 042
     Dates: start: 20071019, end: 20071213
  2. CISPLATIN [Suspect]
     Indication: GASTRIC CANCER
     Dosage: FREQUENCY: 24-HOUR CONTINUOUS IV INFUSION, DAY 1 + 8
     Route: 042
     Dates: start: 20071019, end: 20071122
  3. LEUCOVORIN CALCIUM [Suspect]
     Indication: GASTRIC CANCER
     Dosage: FREQUENCY: 24-HOUR CONTINUOUS IV INFUSION, DAY 8+15
     Route: 042
     Dates: start: 20071019, end: 20071129
  4. FLUOROURACIL [Suspect]
     Indication: GASTRIC CANCER
     Dosage: FREQUENCY: 24-HOUR CONTINUOUS IV INFUSION, DAY 1+8+15
     Route: 042
     Dates: start: 20071019, end: 20071129

REACTIONS (1)
  - FEBRILE NEUTROPENIA [None]
